FAERS Safety Report 5815723-7 (Version None)
Quarter: 2008Q3

REPORT INFORMATION
  Report Type: 
  Country: None (occurrence: None)
  Receive Date: 20080721
  Receipt Date: 20080717
  Transmission Date: 20090109
  Serious: Yes (Hospitalization)
  Sender: FDA-Public Use
  Company Number: CA-BRISTOL-MYERS SQUIBB COMPANY-13363817

PATIENT
  Age: 61 Year
  Sex: Male
  Weight: 110 kg

DRUGS (5)
  1. IRBESARTAN [Suspect]
     Indication: HYPERTENSION
     Dates: start: 20041103
  2. WARFARIN SODIUM [Suspect]
     Indication: PROPHYLAXIS
     Route: 048
     Dates: start: 20041103
  3. BLINDED: PLACEBO [Suspect]
     Indication: HYPERTENSION
     Dates: start: 20041103
  4. PANTOPRAZOLE SODIUM [Concomitant]
  5. HYDROMORPHONE HCL [Concomitant]

REACTIONS (1)
  - HEPATIC STEATOSIS [None]
